FAERS Safety Report 8851746 (Version 1)
Quarter: 2012Q4

REPORT INFORMATION
  Report Type: Spontaneous
  Country: US (occurrence: None)
  Receive Date: 20121018
  Receipt Date: 20121018
  Transmission Date: 20130627
  Serious: Yes (Life-Threatening, Hospitalization, Disabling, Other)
  Sender: FDA-Public Use
  Company Number: None

PATIENT
  Age: 41 Year
  Sex: Male
  Weight: 58.97 kg

DRUGS (2)
  1. ENBREL [Suspect]
     Dosage: 1shot enbrel 2 times weekly sq
     Route: 058
  2. HUMIRA [Suspect]
     Dosage: humiria every 2 weeks sq
     Route: 058

REACTIONS (1)
  - Colon cancer [None]
